FAERS Safety Report 9357736 (Version 1)
Quarter: 2013Q2

REPORT INFORMATION
  Report Type: Spontaneous
  Country: DE (occurrence: DE)
  Receive Date: 20130620
  Receipt Date: 20130620
  Transmission Date: 20140414
  Serious: Yes (Other)
  Sender: FDA-Public Use
  Company Number: DE-PFIZER INC-2013180245

PATIENT
  Sex: 0

DRUGS (1)
  1. REVATIO [Suspect]
     Indication: CARDIAC DISORDER

REACTIONS (2)
  - Off label use [Unknown]
  - Hypotension [Unknown]
